FAERS Safety Report 13818832 (Version 2)
Quarter: 2017Q3

REPORT INFORMATION
  Report Type: Report from Study
  Country: US (occurrence: US)
  Receive Date: 20170801
  Receipt Date: 20170905
  Transmission Date: 20171127
  Serious: No
  Sender: FDA-Public Use
  Company Number: US-009507513-1707USA005664

PATIENT
  Sex: Female

DRUGS (1)
  1. IMPLANON [Suspect]
     Active Substance: ETONOGESTREL
     Indication: PRODUCT USED FOR UNKNOWN INDICATION
     Dosage: 1 DF, 1 ROD EVERY 3 YEARS
     Route: 059

REACTIONS (4)
  - Complication of device insertion [Unknown]
  - Device difficult to use [Unknown]
  - Device expulsion [Unknown]
  - Implant site pain [Unknown]
